FAERS Safety Report 18995645 (Version 5)
Quarter: 2021Q2

REPORT INFORMATION
  Report Type: Spontaneous
  Country: GB (occurrence: GB)
  Receive Date: 20210310
  Receipt Date: 20210427
  Transmission Date: 20210717
  Serious: Yes (Death, Hospitalization, Other)
  Sender: FDA-Public Use
  Company Number: GB-AUROBINDO-AUR-APL-2020-003397

PATIENT
  Age: 66 Year
  Sex: Female

DRUGS (27)
  1. VINORELBINE [Suspect]
     Active Substance: VINORELBINE TARTRATE
     Dosage: 140 MILLIGRAM, EVERY WEEK
     Route: 048
     Dates: start: 20151113, end: 20151120
  2. ADCAL D3 [Concomitant]
     Active Substance: CALCIUM CARBONATE\CHOLECALCIFEROL
     Indication: PRODUCT USED FOR UNKNOWN INDICATION
     Dosage: UNK, ONCE A DAY
     Route: 048
  3. CAPECITABINE. [Suspect]
     Active Substance: CAPECITABINE
     Dosage: 1500 MILLIGRAM, TWO TIMES A DAY
     Route: 048
     Dates: start: 20160603, end: 20160623
  4. OMEPRAZOLE. [Concomitant]
     Active Substance: OMEPRAZOLE
     Indication: GASTRIC POLYPS
     Dosage: 40 MILLIGRAM, ONCE A DAY
     Route: 048
     Dates: end: 20160908
  5. CAPECITABINE. [Suspect]
     Active Substance: CAPECITABINE
     Indication: BREAST CANCER METASTATIC
     Dosage: 1800 MILLIGRAM, TWO TIMES A DAY FREQUENCY ? IN .5 DAYS
     Route: 048
     Dates: start: 20160331
  6. VINORELBINE [Suspect]
     Active Substance: VINORELBINE TARTRATE
     Dosage: UNK
     Route: 048
     Dates: start: 20160122, end: 20160318
  7. DOCUSATE SODIUM. [Concomitant]
     Active Substance: DOCUSATE SODIUM
     Indication: PRODUCT USED FOR UNKNOWN INDICATION
     Dosage: 200 MILLIGRAM, ONCE A DAY
     Route: 048
  8. OXYCODONE [Concomitant]
     Active Substance: OXYCODONE
     Indication: PRODUCT USED FOR UNKNOWN INDICATION
     Dosage: 5 MILLIGRAM, AS NEEDED.
     Route: 048
     Dates: end: 20160908
  9. VINORELBINE [Suspect]
     Active Substance: VINORELBINE TARTRATE
     Indication: BREAST CANCER METASTATIC
     Dosage: 110 MILLIGRAM, EVERY WEEK
     Route: 048
     Dates: start: 20151002, end: 20151030
  10. GABAPENTIN. [Concomitant]
     Active Substance: GABAPENTIN
     Indication: PRODUCT USED FOR UNKNOWN INDICATION
     Dosage: FREQUENCY ? IN .5 DAYS  300,MILLIGRAM
     Route: 048
     Dates: end: 20160908
  11. VINORELBINE [Suspect]
     Active Substance: VINORELBINE TARTRATE
     Dosage: 140 MILLIGRAM, EVERY WEEK
     Route: 048
     Dates: start: 20151230, end: 20160115
  12. VINORELBINE [Suspect]
     Active Substance: VINORELBINE TARTRATE
     Dosage: 150 MILLIGRAM, EVERY WEEK
     Route: 048
     Dates: start: 20160122, end: 20160318
  13. TRASTUZUMAB. [Suspect]
     Active Substance: TRASTUZUMAB
     Indication: BREAST CANCER METASTATIC
     Dosage: 600 MILLIGRAM, 3 WEEK
     Route: 058
     Dates: start: 20151005, end: 20160908
  14. PYRIDOXINE [Concomitant]
     Active Substance: PYRIDOXINE
     Indication: PRODUCT USED FOR UNKNOWN INDICATION
     Dosage: 500 MILLIGRAM, TWO TIMES A DAY (1000 MG, DAILY)
     Route: 048
     Dates: start: 20160525, end: 20160908
  15. TRAMADOL. [Concomitant]
     Active Substance: TRAMADOL
     Indication: PAIN
     Dosage: 50 MILLIGRAM, AS NEEDED.
     Route: 048
     Dates: end: 20160908
  16. TAMOXIFEN TABLET [Suspect]
     Active Substance: TAMOXIFEN
     Indication: BREAST CANCER METASTATIC
     Dosage: 20 MILLIGRAM, ONCE A DAY
     Route: 048
     Dates: start: 20160708, end: 20160908
  17. CAPECITABINE. [Suspect]
     Active Substance: CAPECITABINE
     Dosage: 1800 MILLIGRAM, TWO TIMES A DAY FREQUENCY ? IN .5 DAYS
     Route: 048
     Dates: start: 20160401, end: 20160603
  18. ACICLOVIR [Concomitant]
     Active Substance: ACYCLOVIR
     Indication: PRODUCT USED FOR UNKNOWN INDICATION
     Dosage: 5 PERCENT, (5 % 0.2 DAYS)
     Route: 061
     Dates: start: 20020108
  19. DENOSUMAB [Concomitant]
     Active Substance: DENOSUMAB
     Indication: PRODUCT USED FOR UNKNOWN INDICATION
     Dosage: 120 MILLIGRAM, EVERY MONTH
     Route: 058
  20. LAXIDO [Concomitant]
     Active Substance: POLYETHYLENE GLYCOL 3350\POTASSIUM CHLORIDE\SODIUM BICARBONATE\SODIUM CHLORIDE
     Indication: CONSTIPATION
     Dosage: UNK
     Route: 048
     Dates: start: 20120813
  21. LAXIDO [Concomitant]
     Active Substance: POLYETHYLENE GLYCOL 3350\POTASSIUM CHLORIDE\SODIUM BICARBONATE\SODIUM CHLORIDE
     Dosage: UNK
     Route: 048
     Dates: start: 20160809, end: 20160809
  22. OMEPRAZOLE. [Concomitant]
     Active Substance: OMEPRAZOLE
     Indication: PROPHYLAXIS
  23. CAPECITABINE. [Suspect]
     Active Substance: CAPECITABINE
     Dosage: 3000 MILLIGRAM, ONCE A DAY
     Route: 048
     Dates: start: 20160603, end: 20160623
  24. CAPECITABINE. [Suspect]
     Active Substance: CAPECITABINE
     Dosage: 3600 MILLIGRAM, ONCE A DAY
     Route: 048
     Dates: start: 20160331
  25. VINORELBINE [Suspect]
     Active Substance: VINORELBINE TARTRATE
     Dosage: 150 MILLIGRAM, EVERY WEEK
     Route: 048
     Dates: start: 20151204, end: 20151223
  26. ATORVASTATIN [Concomitant]
     Active Substance: ATORVASTATIN
     Indication: PRODUCT USED FOR UNKNOWN INDICATION
     Dosage: 40 MILLIGRAM, ONCE A DAY
     Route: 048
  27. ASPIRIN. [Concomitant]
     Active Substance: ASPIRIN
     Indication: PRODUCT USED FOR UNKNOWN INDICATION
     Dosage: 75 MILLIGRAM, ONCE A DAY
     Route: 048

REACTIONS (17)
  - Death [Fatal]
  - Sepsis [Recovered/Resolved]
  - Arthralgia [Recovered/Resolved]
  - Lymphadenopathy [Recovered/Resolved]
  - Cough [Recovered/Resolved]
  - Fatigue [Recovered/Resolved]
  - Dyspnoea exertional [Recovered/Resolved]
  - Hypoglycaemia [Recovered/Resolved]
  - Hepatic pain [Recovered/Resolved]
  - Lymphoedema [Recovered/Resolved]
  - Palmar-plantar erythrodysaesthesia syndrome [Unknown]
  - Mucosal inflammation [Recovered/Resolved]
  - Confusional state [Recovered/Resolved]
  - Lower respiratory tract infection [Recovered/Resolved]
  - Constipation [Recovered/Resolved]
  - Oral pain [Recovered/Resolved]
  - Dizziness [Not Recovered/Not Resolved]

NARRATIVE: CASE EVENT DATE: 20160211
